FAERS Safety Report 8623470-1 (Version None)
Quarter: 2012Q3

REPORT INFORMATION
  Report Type: 
  Country: None (occurrence: None)
  Receive Date: 20120827
  Receipt Date: 20120821
  Transmission Date: 20120928
  Serious: Yes (Hospitalization, Other)
  Sender: FDA-Public Use
  Company Number: US-PFIZER INC-2012178387

PATIENT
  Age: 14 Year
  Sex: Male
  Weight: 67.574 kg

DRUGS (4)
  1. BENEFIX [Suspect]
     Dosage: 4000 IU, DAILY
     Dates: start: 20120719
  2. BENEFIX [Suspect]
     Dosage: 4000 IU, 2X/DAY
     Dates: start: 20120716
  3. BENEFIX [Suspect]
     Dosage: UNK, AS NEEDED
  4. BENEFIX [Suspect]
     Indication: FACTOR IX DEFICIENCY
     Dosage: 6000 IU, AS NEEDED

REACTIONS (3)
  - PAIN [None]
  - APPENDICITIS PERFORATED [None]
  - APPENDICEAL ABSCESS [None]
